APPROVED DRUG PRODUCT: OXYCODONE HYDROCHLORIDE
Active Ingredient: OXYCODONE HYDROCHLORIDE
Strength: 100MG/5ML
Dosage Form/Route: SOLUTION;ORAL
Application: A204092 | Product #001
Applicant: DR REDDYS LABORATORIES SA
Approved: Jun 5, 2014 | RLD: No | RS: No | Type: DISCN